FAERS Safety Report 10033249 (Version 1)
Quarter: 2014Q1

REPORT INFORMATION
  Report Type: Report from Study
  Country: US (occurrence: US)
  Receive Date: 20140324
  Receipt Date: 20140324
  Transmission Date: 20141002
  Serious: Yes (Hospitalization, Other)
  Sender: FDA-Public Use
  Company Number: US-ABBVIE-14P-163-1212614-00

PATIENT
  Age: 62 Year
  Sex: Female
  Weight: 73.55 kg

DRUGS (4)
  1. HUMIRA [Suspect]
     Indication: CROHN^S DISEASE
     Dates: start: 20131004, end: 201402
  2. SYNTHROID [Concomitant]
     Indication: THYROIDECTOMY
  3. CELEXA [Concomitant]
     Indication: ANXIETY
  4. NEOSPORIN [Concomitant]
     Indication: PRODUCT USED FOR UNKNOWN INDICATION

REACTIONS (6)
  - Ulcer [Not Recovered/Not Resolved]
  - Gastrointestinal stoma complication [Unknown]
  - Malaise [Unknown]
  - Skin lesion [Not Recovered/Not Resolved]
  - Pain [Unknown]
  - Pruritus [Unknown]
